FAERS Safety Report 17212347 (Version 1)
Quarter: 2019Q4

REPORT INFORMATION
  Report Type: Spontaneous
  Country: GB (occurrence: GB)
  Receive Date: 20191230
  Receipt Date: 20191230
  Transmission Date: 20200122
  Serious: Yes (Other)
  Sender: FDA-Public Use
  Company Number: GB-TEVA-2019-GB-1158507

PATIENT
  Age: 28 Year
  Sex: Female
  Weight: 70 kg

DRUGS (11)
  1. NAPROXEN. [Suspect]
     Active Substance: NAPROXEN
     Dosage: 250 MG
  2. FERROUS SULFATE. [Concomitant]
     Active Substance: FERROUS SULFATE
     Dosage: 1 DF
     Dates: start: 20191024
  3. NUTRITIONAL SUPPLEMENT [Concomitant]
     Active Substance: DIETARY SUPPLEMENT
     Dosage: 2 DF AS PER DIETICINA, VANILLA AND M...
     Dates: start: 20181006
  4. PROPRANOLOL [Concomitant]
     Active Substance: PROPRANOLOL HYDROCHLORIDE
     Dosage: TO BE TAKEN UP TO THREE TIMES A DAY FOR ANX...
     Dates: start: 20171120
  5. FLUOXETINE [Concomitant]
     Active Substance: FLUOXETINE HYDROCHLORIDE
     Dosage: 3 DF
     Dates: start: 20170214
  6. FORCEVAL [Concomitant]
     Active Substance: FOLIC ACID\IRON\MINERALS\VITAMINS
     Dosage: 1 DF
     Dates: start: 20180613
  7. ALUMINIUM CHLORIDE HEXAHYDRATE [Concomitant]
     Dosage: AS DIRECTED
     Dates: start: 20140821
  8. ADCAL [Concomitant]
     Dosage: 1 DF
     Dates: start: 20180613
  9. ZINERYT [Concomitant]
     Dosage: APPLY 2  DF
     Dates: start: 20190613
  10. DICLOFENAC SODIUM. [Concomitant]
     Active Substance: DICLOFENAC SODIUM
     Indication: PAIN
     Dosage: 1 DF INSERT ONE DAILY
     Dates: start: 20191120
  11. FOLIC ACID. [Concomitant]
     Active Substance: FOLIC ACID
     Dosage: 1 DF
     Dates: start: 20190211

REACTIONS (1)
  - Lip swelling [Recovered/Resolved]
